FAERS Safety Report 18339128 (Version 1)
Quarter: 2020Q3

REPORT INFORMATION
  Report Type: Spontaneous
  Country: US (occurrence: US)
  Receive Date: 20200930
  Receipt Date: 20200930
  Transmission Date: 20201103
  Serious: Yes (Hospitalization)
  Sender: FDA-Public Use
  Company Number: None

PATIENT
  Age: 67 Year
  Sex: Male
  Weight: 69 kg

DRUGS (1)
  1. PACLITAXEL (PACLITAXEL 300MG/50ML INJ, VIL, 50ML) [Suspect]
     Active Substance: PACLITAXEL
     Indication: OESOPHAGEAL CARCINOMA
     Dosage: ?          OTHER ROUTE:IV?
     Route: 042
     Dates: start: 20200910, end: 20200918

REACTIONS (16)
  - Infusion related reaction [None]
  - Chest pain [None]
  - Abdominal pain upper [None]
  - Hyperhidrosis [None]
  - Hyponatraemia [None]
  - Anaphylactic reaction [None]
  - Pallor [None]
  - Malaise [None]
  - Nausea [None]
  - Hypotension [None]
  - Presyncope [None]
  - Dyskinesia [None]
  - Anxiety [None]
  - Chest discomfort [None]
  - Dizziness [None]
  - Dyspnoea [None]

NARRATIVE: CASE EVENT DATE: 20200918
